FAERS Safety Report 9095432 (Version 2)
Quarter: 2013Q2

REPORT INFORMATION
  Report Type: Spontaneous
  Country: US (occurrence: None)
  Receive Date: 20130123
  Receipt Date: 20130501
  Transmission Date: 20140414
  Serious: Yes (Other)
  Sender: FDA-Public Use
  Company Number: 2013-0189

PATIENT
  Age: 67 Year
  Sex: Female
  Weight: 56 kg

DRUGS (5)
  1. SOMATULINE DEPOT [Suspect]
     Indication: ACROMEGALY
     Dosage: 90 MG (90 MG, 1 IN 28 D), SUBCUTANEOUS
     Route: 058
     Dates: start: 20120613, end: 201209
  2. PRILOSEC [Concomitant]
  3. VESICARE (SOLIFENACIN) [Concomitant]
  4. VITAMIN D (ERGOCALCIFEROL) [Concomitant]
  5. PRAVASTATIN (PRAVASTATIN) [Concomitant]

REACTIONS (3)
  - Loss of consciousness [None]
  - Blood glucose decreased [None]
  - Tremor [None]
